FAERS Safety Report 6214214-1 (Version None)
Quarter: 2009Q2

REPORT INFORMATION
  Report Type: 
  Country: None (occurrence: None)
  Receive Date: 20090604
  Receipt Date: 20090602
  Transmission Date: 20091009
  Serious: Yes (Hospitalization)
  Sender: FDA-Public Use
  Company Number: US-BRISTOL-MYERS SQUIBB COMPANY-14609606

PATIENT
  Age: 58 Year
  Sex: Female
  Weight: 127 kg

DRUGS (8)
  1. IXABEPILONE [Suspect]
     Indication: NON-SMALL CELL LUNG CANCER
     Route: 042
     Dates: start: 20090420, end: 20090420
  2. PARAPLATIN [Suspect]
     Indication: NON-SMALL CELL LUNG CANCER
     Dosage: 1 DF = 6 AUC
     Route: 042
     Dates: start: 20090420, end: 20090420
  3. AVASTIN [Suspect]
     Indication: NON-SMALL CELL LUNG CANCER
     Route: 042
     Dates: start: 20090420, end: 20090420
  4. XANAX [Concomitant]
     Dosage: 1MG/DAY
  5. COMPAZINE [Concomitant]
  6. CELEXA [Concomitant]
  7. RISPERIDONE [Concomitant]
  8. LEVAQUIN [Concomitant]
     Dosage: 250MGX7

REACTIONS (3)
  - DYSPNOEA [None]
  - ENCEPHALOPATHY [None]
  - NEUTROPENIA [None]
